APPROVED DRUG PRODUCT: M-PREDROL
Active Ingredient: METHYLPREDNISOLONE ACETATE
Strength: 40MG/ML
Dosage Form/Route: INJECTABLE;INJECTION
Application: A086666 | Product #001
Applicant: BEL MAR LABORATORIES INC
Approved: Approved Prior to Jan 1, 1982 | RLD: No | RS: No | Type: DISCN